FAERS Safety Report 9718895 (Version 1)
Quarter: 2013Q4

REPORT INFORMATION
  Report Type: Spontaneous
  Country: TR (occurrence: None)
  Receive Date: 20131126
  Receipt Date: 20131126
  Transmission Date: 20140711
  Serious: Yes (Other)
  Sender: FDA-Public Use
  Company Number: 2013HINLIT0258

PATIENT
  Age: 44 Year
  Sex: Female

DRUGS (5)
  1. LEVETIRACETAM (LEVETIRACETAM) UNKNOWN [Suspect]
     Indication: PRODUCT USED FOR UNKNOWN INDICATION
     Dosage: 500 MG, DAY, UNKNOWN
  2. CARBAMAZEPINE (CARBAMAZEPINE) [Concomitant]
  3. CARBAMAZEPHINE (CARBAMAZEPINE)? [Concomitant]
  4. CARBAMAZEPINE (CARBAMAZEPINE) [Concomitant]
  5. CARBAMAZEPINE (CARBAMAZEPINE) [Concomitant]

REACTIONS (1)
  - Hypersexuality [None]
